FAERS Safety Report 20497046 (Version 1)
Quarter: 2022Q1

REPORT INFORMATION
  Report Type: Spontaneous
  Country: US (occurrence: US)
  Receive Date: 20220221
  Receipt Date: 20220221
  Transmission Date: 20220423
  Serious: No
  Sender: FDA-Public Use
  Company Number: US-Millicent Holdings Ltd.-MILL20220073

PATIENT
  Age: 77 Year
  Sex: Female

DRUGS (1)
  1. INTRAROSA [Suspect]
     Active Substance: PRASTERONE
     Indication: Urinary tract disorder prophylaxis
     Dosage: UNKNOWN
     Route: 067

REACTIONS (2)
  - Off label use [Not Recovered/Not Resolved]
  - Product packaging difficult to open [Not Recovered/Not Resolved]
